FAERS Safety Report 14216576 (Version 2)
Quarter: 2018Q4

REPORT INFORMATION
  Report Type: Report from Study
  Country: DE (occurrence: DE)
  Receive Date: 20171122
  Receipt Date: 20181010
  Transmission Date: 20190204
  Serious: Yes (Other)
  Sender: FDA-Public Use
  Company Number: DE-INCYTE CORPORATION-2014IN002277

PATIENT

DRUGS (3)
  1. INCB018424 [Suspect]
     Active Substance: RUXOLITINIB
     Dosage: 10 MG/DAY/TWICE
     Route: 048
     Dates: start: 20130530, end: 20130630
  2. INCB018424 [Suspect]
     Active Substance: RUXOLITINIB
     Dosage: 20 MG/DAY/TWICE
     Route: 048
     Dates: start: 20130701
  3. INCB018424 [Suspect]
     Active Substance: RUXOLITINIB
     Indication: MYELOFIBROSIS
     Dosage: 20 MG/DAY/TWICE
     Route: 048
     Dates: start: 20130522, end: 20130529

REACTIONS (1)
  - Hyperkalaemia [Recovered/Resolved]

NARRATIVE: CASE EVENT DATE: 20130529
